FAERS Safety Report 7367758-3 (Version None)
Quarter: 2011Q1

REPORT INFORMATION
  Report Type: 
  Country: None (occurrence: None)
  Receive Date: 20110322
  Receipt Date: 20110311
  Transmission Date: 20110831
  Serious: Yes (Other)
  Sender: FDA-Public Use
  Company Number: US-ASTRAZENECA-2011SE14043

PATIENT
  Age: 81 Year
  Sex: Female

DRUGS (1)
  1. CRESTOR [Suspect]
     Route: 048

REACTIONS (5)
  - THYROID MASS [None]
  - CARDIAC DISORDER [None]
  - PULMONARY MASS [None]
  - HEPATIC MASS [None]
  - DIABETES MELLITUS [None]
